FAERS Safety Report 5241792-1 (Version None)
Quarter: 2007Q1

REPORT INFORMATION
  Report Type: 
  Country: None (occurrence: None)
  Receive Date: 20070220
  Receipt Date: 20070212
  Transmission Date: 20070707
  Serious: Yes (Hospitalization, Other)
  Sender: FDA-Public Use
  Company Number: US-SANOFI-SYNTHELABO-D01200700664

PATIENT
  Sex: Female
  Weight: 57.2 kg

DRUGS (8)
  1. ATIVAN [Concomitant]
     Indication: NAUSEA
  2. COUMADIN [Concomitant]
     Indication: THROMBOSIS PROPHYLAXIS
  3. DETROL [Concomitant]
     Indication: INCONTINENCE
  4. AVASTIN [Suspect]
     Dates: start: 20061221, end: 20061221
  5. LEUCOVORIN CALCIUM [Suspect]
     Route: 042
     Dates: start: 20061221, end: 20061221
  6. FLUOROURACIL [Suspect]
     Dosage: 400 MG/M?, IV BOLUS D1+D2 FOLLOWED BY 5-FU 2400 MG/M? OVER 46-HOUR CONTINUOUS INFUSION.
     Route: 042
     Dates: start: 20061221, end: 20061221
  7. OXALIPLATIN [Suspect]
     Route: 042
     Dates: start: 20061221, end: 20061221
  8. SR57746 OR PLACEBO [Suspect]
     Indication: NEUROLOGICAL SYMPTOM
     Route: 048
     Dates: start: 20061130, end: 20070103

REACTIONS (1)
  - SYNCOPE [None]
